FAERS Safety Report 5565078-0 (Version None)
Quarter: 2007Q4

REPORT INFORMATION
  Report Type: 
  Country: None (occurrence: None)
  Receive Date: 20071218
  Receipt Date: 20071213
  Transmission Date: 20080405
  Serious: Yes (Hospitalization)
  Sender: FDA-Public Use
  Company Number: IN-ASTRAZENECA-2007AC02447

PATIENT
  Age: 45 Year
  Sex: Male

DRUGS (5)
  1. QUETIAPINE [Suspect]
     Indication: MANIA
     Dosage: TAPERED UP
     Route: 048
  2. QUETIAPINE [Suspect]
     Route: 048
  3. VALPROATE SODIUM [Concomitant]
     Indication: MANIA
  4. ZUCLOPENTHIXOL ACETATE [Concomitant]
     Indication: AGITATION
     Route: 030
  5. ZUCLOPENTHIXOL [Concomitant]
     Indication: MANIA

REACTIONS (2)
  - LEUKOPENIA [None]
  - THROMBOCYTOPENIA [None]
